FAERS Safety Report 9287150 (Version 1)
Quarter: 2013Q2

REPORT INFORMATION
  Report Type: Spontaneous
  Country: US (occurrence: US)
  Receive Date: 20130513
  Receipt Date: 20130513
  Transmission Date: 20140414
  Serious: Yes (Hospitalization, Other)
  Sender: FDA-Public Use
  Company Number: US-009507513-1205USA05516

PATIENT
  Age: 79 Year
  Sex: Female

DRUGS (1)
  1. MK-0966 [Suspect]
     Dosage: 5 MG, BID
     Route: 048
     Dates: start: 2001, end: 2001

REACTIONS (5)
  - Loss of consciousness [Not Recovered/Not Resolved]
  - Hypertension [Not Recovered/Not Resolved]
  - Renal injury [Not Recovered/Not Resolved]
  - Incorrect dose administered [Unknown]
  - Gastric ulcer [Unknown]
